FAERS Safety Report 6623567-1 (Version None)
Quarter: 2010Q1

REPORT INFORMATION
  Report Type: 
  Country: None (occurrence: None)
  Receive Date: 20100310
  Receipt Date: 20100226
  Transmission Date: 20100710
  Serious: Yes (Other)
  Sender: FDA-Public Use
  Company Number: US-PFIZER INC-2010025848

PATIENT
  Sex: Female
  Weight: 54.422 kg

DRUGS (6)
  1. SUTENT [Suspect]
     Indication: GASTROINTESTINAL STROMAL TUMOUR
     Dosage: 12.5 MG, FOR FOUR WEEKS FOLLOWED BY WASH OUT PERIOD OF TWO WEEKS
     Route: 048
     Dates: start: 20100120
  2. LABETALOL HCL [Concomitant]
     Indication: BLOOD PRESSURE
     Dosage: UNK
  3. AMLODIPINE [Concomitant]
     Indication: BLOOD PRESSURE
     Dosage: UNK
  4. VESICARE [Concomitant]
     Indication: HYPERTONIC BLADDER
     Dosage: UNK
  5. TIMOLOL [Concomitant]
     Indication: GLAUCOMA
     Dosage: UNK
  6. PLAVIX [Concomitant]
     Indication: THROMBOSIS
     Dosage: UNK

REACTIONS (3)
  - ASTHENIA [None]
  - BLOOD IRON ABNORMAL [None]
  - INTRAOCULAR PRESSURE INCREASED [None]
